FAERS Safety Report 22124175 (Version 1)
Quarter: 2023Q1

REPORT INFORMATION
  Report Type: Spontaneous
  Country: CA (occurrence: CA)
  Receive Date: 20230322
  Receipt Date: 20230322
  Transmission Date: 20230417
  Serious: Yes (Life-Threatening, Other)
  Sender: FDA-Public Use
  Company Number: None

PATIENT
  Age: 50 Year
  Sex: Female

DRUGS (1)
  1. MONOFERRIC [Suspect]
     Active Substance: FERRIC DERISOMALTOSE
     Indication: Serum ferritin decreased
     Route: 050

REACTIONS (8)
  - Cough [Unknown]
  - Erythema [Unknown]
  - Headache [Unknown]
  - Infusion site pruritus [Unknown]
  - Nausea [Unknown]
  - Pruritus [Unknown]
  - Tinnitus [Unknown]
  - Vomiting [Unknown]
